FAERS Safety Report 5478846-0 (Version None)
Quarter: 2007Q4

REPORT INFORMATION
  Report Type: 
  Country: None (occurrence: None)
  Receive Date: 20071002
  Receipt Date: 20070919
  Transmission Date: 20080405
  Serious: Yes (Life-Threatening, Hospitalization)
  Sender: FDA-Public Use
  Company Number: 062-C5013-07071574

PATIENT
  Age: 69 Year
  Sex: Male
  Weight: 90 kg

DRUGS (9)
  1. CC-5013 (LENALIDOMIDE) (CAPSULES) [Suspect]
     Indication: MULTIPLE MYELOMA
     Dosage: 25 MG, DIALY, ORAL
     Route: 048
     Dates: start: 20070716, end: 20070726
  2. DEXAMETHASONE TAB [Suspect]
     Indication: MULTIPLE MYELOMA
     Dosage: 40 MG, D1-4, 9-12, 17-20, ORAL
     Dates: start: 20070716, end: 20070726
  3. MORPHINE [Concomitant]
  4. METAMIZOL (METAMIZOLE) [Concomitant]
  5. LANSOPRAZOLE [Concomitant]
  6. FUROSEMIDE [Concomitant]
  7. BISOPROLOL FUMARATE [Concomitant]
  8. ASPIRIN [Concomitant]
  9. MACROGOL (MACROGOL) [Concomitant]

REACTIONS (9)
  - COUGH [None]
  - DYSPNOEA [None]
  - GENERAL PHYSICAL HEALTH DETERIORATION [None]
  - HYPOTENSION [None]
  - LEUKOPENIA [None]
  - PNEUMONIA [None]
  - PULMONARY OEDEMA [None]
  - RENAL FAILURE [None]
  - SEPSIS [None]
